FAERS Safety Report 12490052 (Version 1)
Quarter: 2016Q2

REPORT INFORMATION
  Report Type: Report from Study
  Country: US (occurrence: US)
  Receive Date: 20160622
  Receipt Date: 20160622
  Transmission Date: 20160815
  Serious: Yes (Hospitalization, Other)
  Sender: FDA-Public Use
  Company Number: US-ASTRAZENECA-2016SE67651

PATIENT
  Sex: Male

DRUGS (1)
  1. BYDUREON [Suspect]
     Active Substance: EXENATIDE
     Route: 058

REACTIONS (8)
  - Splenic thrombosis [Unknown]
  - Anticoagulation drug level below therapeutic [Unknown]
  - Blood potassium abnormal [Unknown]
  - Pancreatitis [Recovering/Resolving]
  - Feeling abnormal [Unknown]
  - Blood electrolytes abnormal [Recovered/Resolved]
  - Cardiac valve replacement complication [Unknown]
  - Joint dislocation [Unknown]

NARRATIVE: CASE EVENT DATE: 201601
